FAERS Safety Report 19636293 (Version 3)
Quarter: 2022Q3

REPORT INFORMATION
  Report Type: Spontaneous
  Country: JP (occurrence: JP)
  Receive Date: 20210730
  Receipt Date: 20220714
  Transmission Date: 20221027
  Serious: Yes (Other)
  Sender: FDA-Public Use
  Company Number: JP-GLAXOSMITHKLINE-JP2021JPN148848

PATIENT

DRUGS (19)
  1. SUMATRIPTAN SUCCINATE [Suspect]
     Active Substance: SUMATRIPTAN SUCCINATE
     Indication: Headache
     Dosage: 50 MG, TID
     Route: 064
     Dates: start: 20181220, end: 20181220
  2. SUMATRIPTAN SUCCINATE [Suspect]
     Active Substance: SUMATRIPTAN SUCCINATE
     Indication: Migraine
     Dosage: 50 MG, BID
     Route: 064
     Dates: start: 201812, end: 201812
  3. SUMATRIPTAN SUCCINATE [Suspect]
     Active Substance: SUMATRIPTAN SUCCINATE
     Dosage: 50 MG, QD
     Route: 064
     Dates: start: 201812, end: 20181226
  4. HERBALS [Concomitant]
     Active Substance: HERBALS
     Indication: Headache
     Dosage: 7.5 G, 1D
     Route: 064
     Dates: start: 20181220, end: 20181227
  5. HERBALS [Concomitant]
     Active Substance: HERBALS
     Indication: Migraine
  6. RITODRINE HYDROCHLORIDE [Concomitant]
     Active Substance: RITODRINE HYDROCHLORIDE
     Indication: Premature labour
     Dosage: 100-50 UG PER MIN
     Route: 064
     Dates: start: 20181217, end: 20190112
  7. HERBALS [Concomitant]
     Active Substance: HERBALS
     Indication: Headache
     Dosage: 7.5 G, 1D
     Route: 064
     Dates: start: 20181220, end: 20181227
  8. HERBALS [Concomitant]
     Active Substance: HERBALS
     Indication: Migraine
  9. CEFMETAZOLE SODIUM [Concomitant]
     Active Substance: CEFMETAZOLE SODIUM
     Indication: Premature rupture of membranes
     Dosage: 2 G, 1D
     Route: 064
     Dates: start: 20181220, end: 20190107
  10. AMPICILLIN [Concomitant]
     Active Substance: AMPICILLIN
     Indication: Premature rupture of membranes
     Dosage: 4 G, 1D
     Route: 064
     Dates: start: 20181217, end: 20181220
  11. ACETAMINOPHEN [Concomitant]
     Active Substance: ACETAMINOPHEN
     Indication: Headache
     Dosage: 1000-2000 UG PER DAY
     Route: 064
     Dates: start: 20181218, end: 20181230
  12. ACETAMINOPHEN [Concomitant]
     Active Substance: ACETAMINOPHEN
     Indication: Migraine
  13. RINDERON [Concomitant]
     Indication: Premature labour
     Dosage: 12 MG, 1D
     Route: 064
     Dates: start: 20181217, end: 20181218
  14. CIMZIA [Concomitant]
     Active Substance: CERTOLIZUMAB PEGOL
     Indication: Rheumatoid arthritis
     Dosage: UNK
     Route: 064
     Dates: start: 20180806, end: 20181204
  15. PREDNISOLONE [Concomitant]
     Active Substance: PREDNISOLONE
     Indication: Rheumatoid arthritis
     Dosage: 5 MG, 1D
     Route: 064
  16. LYRICA [Concomitant]
     Active Substance: PREGABALIN
     Indication: Fibromyalgia
     Dosage: UNK
     Route: 064
     Dates: end: 20180821
  17. CYMBALTA [Concomitant]
     Active Substance: DULOXETINE HYDROCHLORIDE
     Indication: Fibromyalgia
     Dosage: UNK
     Route: 064
     Dates: end: 20180821
  18. NEUROTROPIN [Concomitant]
     Active Substance: NEUROTROPIN
     Indication: Fibromyalgia
     Dosage: UNK
     Route: 064
     Dates: end: 20180821
  19. IBUPROFEN [Concomitant]
     Active Substance: IBUPROFEN
     Indication: Fibromyalgia
     Dosage: UNK
     Route: 064
     Dates: end: 20180821

REACTIONS (6)
  - Hyperbilirubinaemia [Recovered/Resolved]
  - Apnoeic attack [Recovered/Resolved]
  - Low birth weight baby [Recovering/Resolving]
  - Anaemia [Recovering/Resolving]
  - Nasopharyngitis [Recovered/Resolved]
  - Foetal exposure during pregnancy [Unknown]

NARRATIVE: CASE EVENT DATE: 20190112
